FAERS Safety Report 8839641 (Version 1)
Quarter: 2012Q4

REPORT INFORMATION
  Report Type: Spontaneous
  Country: US (occurrence: None)
  Receive Date: 20121012
  Receipt Date: 20121012
  Transmission Date: 20130627
  Serious: Yes (Other)
  Sender: FDA-Public Use
  Company Number: None

PATIENT
  Sex: Female

DRUGS (2)
  1. BYSTOLIC [Suspect]
     Dosage: 10 mcg a day
ex forge 5-160 mcg once a day
  2. EXFORGE [Suspect]
     Dosage: 5-160 mg once a day

REACTIONS (5)
  - Oedema peripheral [None]
  - Oedema peripheral [None]
  - Lip exfoliation [None]
  - Weight increased [None]
  - Vision blurred [None]
